FAERS Safety Report 24417611 (Version 1)
Quarter: 2024Q4

REPORT INFORMATION
  Report Type: Spontaneous
  Country: FR (occurrence: FR)
  Receive Date: 20241009
  Receipt Date: 20241009
  Transmission Date: 20250115
  Serious: Yes (Other)
  Sender: MYLAN
  Company Number: None

PATIENT
  Age: 63 Year
  Sex: Female

DRUGS (1)
  1. ZOLEDRONIC ACID [Suspect]
     Active Substance: ZOLEDRONIC ACID
     Indication: Osteoporosis
     Dosage: 1 DOSAGE FORM, TOTAL
     Route: 042
     Dates: start: 20240403, end: 20240403

REACTIONS (10)
  - Deafness [Recovering/Resolving]
  - Macular degeneration [Recovering/Resolving]
  - Condition aggravated [Recovering/Resolving]
  - Tinnitus [Recovering/Resolving]
  - Creatinine renal clearance decreased [Recovered/Resolved]
  - Bone pain [Recovering/Resolving]
  - Myalgia [Recovering/Resolving]
  - Asthenia [Recovering/Resolving]
  - Headache [Recovering/Resolving]
  - Pyrexia [Recovering/Resolving]

NARRATIVE: CASE EVENT DATE: 20240404
